FAERS Safety Report 5420227-X (Version None)
Quarter: 2007Q3

REPORT INFORMATION
  Report Type: 
  Country: None (occurrence: None)
  Receive Date: 20070815
  Receipt Date: 20070801
  Transmission Date: 20080115
  Serious: Yes (Hospitalization)
  Sender: FDA-Public Use
  Company Number: 07-001620

PATIENT
  Age: 87 Year
  Sex: Male

DRUGS (1)
  1. PHENAZOPYRIDINE HCL TAB [Suspect]
     Dosage: 300 MG, DAILY,

REACTIONS (10)
  - ANAEMIA MACROCYTIC [None]
  - CHROMATURIA [None]
  - CYANOSIS CENTRAL [None]
  - DYSURIA [None]
  - METHAEMOGLOBINAEMIA [None]
  - NAIL DISCOLOURATION [None]
  - OCULAR ICTERUS [None]
  - PROSTATE EXAMINATION ABNORMAL [None]
  - PYURIA [None]
  - REFUSAL OF TREATMENT BY PATIENT [None]
